FAERS Safety Report 19441548 (Version 2)
Quarter: 2021Q3

REPORT INFORMATION
  Report Type: Other
  Country: GB (occurrence: GB)
  Receive Date: 20210621
  Receipt Date: 20210709
  Transmission Date: 20211014
  Serious: Yes (Hospitalization, Other)
  Sender: FDA-Public Use
  Company Number: GB-ROCHE-2847767

PATIENT
  Age: 26 Year
  Sex: Male

DRUGS (4)
  1. TACROLIMUS. [Suspect]
     Active Substance: TACROLIMUS
     Indication: PROPHYLAXIS AGAINST TRANSPLANT REJECTION
     Route: 065
     Dates: start: 2001
  2. TACROLIMUS. [Suspect]
     Active Substance: TACROLIMUS
     Route: 065
     Dates: end: 2016
  3. MYCOPHENOLATE MOFETIL. [Suspect]
     Active Substance: MYCOPHENOLATE MOFETIL
     Indication: PROPHYLAXIS AGAINST TRANSPLANT REJECTION
     Route: 065
     Dates: start: 2001, end: 2016
  4. PREDNISOLONE. [Suspect]
     Active Substance: PREDNISOLONE
     Indication: PROPHYLAXIS AGAINST TRANSPLANT REJECTION
     Route: 065
     Dates: start: 2001, end: 2016

REACTIONS (5)
  - Eye infection toxoplasmal [Recovered/Resolved]
  - Central nervous system immune reconstitution inflammatory response [Recovered/Resolved]
  - Meningitis [Unknown]
  - Epstein-Barr virus infection reactivation [Recovering/Resolving]
  - Toxoplasmosis [Recovered/Resolved]

NARRATIVE: CASE EVENT DATE: 2016
